FAERS Safety Report 6994140 (Version 3)
Quarter: 2012Q4

REPORT INFORMATION
  Report Type: 
  Country: US (occurrence: US)
  Receive Date: 20090514
  Receipt Date: 20121120
  Transmission Date: 20130627
  Serious: Yes (Hospitalization)
  Sender: FDA-Public Use
  Company Number: US-BIOGENIDEC-2009BI014148

PATIENT
  Age: 37 Year
  Sex: Female

DRUGS (2)
  1. AVONEX [Suspect]
     Indication: MULTIPLE SCLEROSIS
     Route: 030
     Dates: start: 20080131, end: 20090415
  2. BETASERON [Concomitant]

REACTIONS (6)
  - Myocardial infarction [Recovered/Resolved]
  - Blood cholesterol increased [Unknown]
  - Cardiac disorder [Unknown]
  - Asthenia [Not Recovered/Not Resolved]
  - Urticaria [Recovered/Resolved]
  - Palpitations [Unknown]
